FAERS Safety Report 11540621 (Version 1)
Quarter: 2015Q3

REPORT INFORMATION
  Report Type: Spontaneous
  Country: US (occurrence: US)
  Receive Date: 20150923
  Receipt Date: 20150923
  Transmission Date: 20151125
  Serious: No
  Sender: FDA-Public Use
  Company Number: US-BEH-2015051245

PATIENT
  Sex: Male
  Weight: 81 kg

DRUGS (20)
  1. PRIVIGEN [Suspect]
     Active Substance: HUMAN IMMUNOGLOBULIN G
     Indication: IMMUNODEFICIENCY COMMON VARIABLE
     Route: 042
  2. VITAMIN D [Concomitant]
     Active Substance: CHOLECALCIFEROL
     Route: 048
  3. SODIUM CHLORIDE. [Concomitant]
     Active Substance: SODIUM CHLORIDE
     Indication: FLUSHING
     Route: 042
  4. LIDOCAINE/PRILOCAINE [Concomitant]
     Dosage: 2.5% PRIOR TO INFUSION
     Route: 048
  5. EPIPEN [Concomitant]
     Active Substance: EPINEPHRINE
     Indication: ANAPHYLACTIC REACTION
     Dosage: AS NEEDED
     Route: 030
  6. POTASSIUM [Concomitant]
     Active Substance: POTASSIUM
     Dosage: 1 DOSE TWICE A DAY
     Route: 048
  7. ONDANSETERON [Concomitant]
     Dosage: 1 TAB EVERY 8 HOURS A S NEEDED
     Route: 048
  8. FINASTERIDE. [Concomitant]
     Active Substance: FINASTERIDE
     Dosage: 1 TAB DAILY
     Route: 048
  9. L-ARGININE [Concomitant]
     Active Substance: ARGININE
     Route: 048
  10. BUPROPION. [Concomitant]
     Active Substance: BUPROPION
     Dosage: TWICE A DAY
     Route: 048
  11. LISINOPRIL. [Concomitant]
     Active Substance: LISINOPRIL
     Dosage: 1 TAB DAILY
     Route: 048
  12. ACETAMINOPHEN. [Concomitant]
     Active Substance: ACETAMINOPHEN
     Dosage: PRIOR TO INFUSION
     Route: 048
  13. LIPITOR [Concomitant]
     Active Substance: ATORVASTATIN CALCIUM
     Route: 048
  14. OMEGA [Concomitant]
     Active Substance: CONVALLARIA MAJALIS\CRATAEGUS LAEVIGATA LEAF\PROXYPHYLLINE
     Route: 048
  15. DIPHENHYDRAMINE. [Concomitant]
     Active Substance: DIPHENHYDRAMINE
     Indication: ANAPHYLACTIC REACTION
     Dosage: AS NEEDED
  16. PRIVIGEN [Suspect]
     Active Substance: HUMAN IMMUNOGLOBULIN G
     Indication: IMMUNODEFICIENCY COMMON VARIABLE
     Route: 042
  17. HYDROCHLORTHIAZIDE [Concomitant]
     Active Substance: HYDROCHLOROTHIAZIDE
     Route: 048
  18. ZOLPIDEM [Concomitant]
     Active Substance: ZOLPIDEM\ZOLPIDEM TARTRATE
     Dosage: 1 DOSE AT BEDTIME AS NEEDED
     Route: 048
  19. AMLODIPINE [Concomitant]
     Active Substance: AMLODIPINE BESYLATE
     Dosage: 1 TAB DAILY
     Route: 048
  20. VITAMIN C BIOFLAVONOID [Concomitant]
     Route: 048

REACTIONS (1)
  - Sinusitis [Unknown]
